FAERS Safety Report 8011293-6 (Version None)
Quarter: 2011Q4

REPORT INFORMATION
  Report Type: 
  Country: None (occurrence: None)
  Receive Date: 20111227
  Receipt Date: 20111227
  Transmission Date: 20120403
  Serious: Yes (Life-Threatening, Hospitalization)
  Sender: FDA-Public Use
  Company Number: None

PATIENT
  Age: 49 Year
  Sex: Female
  Weight: 70.76 kg

DRUGS (2)
  1. NORVASC [Suspect]
     Indication: HYPERTENSION
     Dosage: 0.1 MG
     Route: 048
     Dates: start: 20111121, end: 20111121
  2. CATAPRES [Concomitant]
     Indication: HYPERTENSION
     Dosage: 0.1 MG
     Route: 048
     Dates: start: 20111205, end: 20111215

REACTIONS (15)
  - LIP SWELLING [None]
  - PRURITUS [None]
  - PAIN [None]
  - WOUND HAEMORRHAGE [None]
  - RETINOPATHY HYPERTENSIVE [None]
  - COMMUNICATION DISORDER [None]
  - DRUG HYPERSENSITIVITY [None]
  - ANXIETY [None]
  - HEADACHE [None]
  - SWELLING FACE [None]
  - BURNING SENSATION [None]
  - BLINDNESS [None]
  - MALAISE [None]
  - IMPAIRED DRIVING ABILITY [None]
  - URTICARIA [None]
